FAERS Safety Report 7175924-5 (Version None)
Quarter: 2010Q4

REPORT INFORMATION
  Report Type: 
  Country: None (occurrence: None)
  Receive Date: 20101220
  Receipt Date: 20101209
  Transmission Date: 20110411
  Serious: Yes (Other)
  Sender: FDA-Public Use
  Company Number: US-BIOGENIDEC-2010BI040068

PATIENT
  Age: 47 Year
  Sex: Male
  Weight: 89 kg

DRUGS (6)
  1. TYSABRI [Suspect]
     Indication: MULTIPLE SCLEROSIS
     Route: 042
     Dates: start: 20070222
  2. HYTRIN [Concomitant]
  3. LEXAPRO [Concomitant]
  4. MEPERIDINE HCL [Concomitant]
  5. NORVASC [Concomitant]
  6. TRICOR [Concomitant]

REACTIONS (3)
  - INCISION SITE PAIN [None]
  - METASTATIC NEOPLASM [None]
  - TONSIL CANCER [None]
